FAERS Safety Report 15886101 (Version 1)
Quarter: 2019Q1

REPORT INFORMATION
  Report Type: Spontaneous
  Country: NL (occurrence: NL)
  Receive Date: 20190129
  Receipt Date: 20190129
  Transmission Date: 20190417
  Serious: Yes (Other)
  Sender: FDA-Public Use
  Company Number: PHHY2019NL019305

PATIENT
  Sex: Male

DRUGS (20)
  1. TRACYDAL [Suspect]
     Active Substance: TRANYLCYPROMINE SULFATE
     Dosage: 10 MG, QD (HALF A TABLET (10 MG) A DAY IN THE MORNING)
     Route: 065
     Dates: start: 201707, end: 2017
  2. TRACYDAL [Suspect]
     Active Substance: TRANYLCYPROMINE SULFATE
     Indication: DRUG INEFFECTIVE
     Dosage: 50 MG, QD (2.5 TABLETS (50 MG) PER DAY IN THE MORNING)
     Route: 065
     Dates: start: 2017, end: 2017
  3. TRACYDAL [Suspect]
     Active Substance: TRANYLCYPROMINE SULFATE
     Dosage: 20 MG, TID (3 TABLETS (60 MG) PER DAY IN THE MORINING)
     Route: 065
     Dates: start: 2017, end: 2017
  4. TRACYDAL [Suspect]
     Active Substance: TRANYLCYPROMINE SULFATE
     Dosage: 30 MG, QD (1.5 TABLETS (30 MG) PER DAY IN THE MORNING)
     Route: 065
     Dates: start: 2017, end: 2017
  5. TRACYDAL [Suspect]
     Active Substance: TRANYLCYPROMINE SULFATE
     Dosage: 20 MG, BID (2 TABLETS (40 MG) PER DAY IN THE MORNING)
     Route: 065
     Dates: start: 2017, end: 201801
  6. TRACYDAL [Suspect]
     Active Substance: TRANYLCYPROMINE SULFATE
     Dosage: 30 MG, QD (1.5 TABLETS A DAY IN THE MORNING)
     Route: 065
     Dates: start: 201810, end: 201811
  7. TRACYDAL [Suspect]
     Active Substance: TRANYLCYPROMINE SULFATE
     Dosage: 20 MG, QD (1 TABLET (20 MG) PER DAY IN THE MORNING)
     Route: 065
     Dates: start: 2017, end: 2017
  8. EUTHYROX [Concomitant]
     Active Substance: LEVOTHYROXINE SODIUM
     Indication: HYPERTHYROIDISM
     Dosage: 112 UG, QD
     Route: 065
  9. DOSTINEX [Concomitant]
     Active Substance: CABERGOLINE
     Indication: PROLACTIN-PRODUCING PITUITARY TUMOUR
     Dosage: 0.25 MG, TIW
     Route: 065
  10. PRIADEL [Concomitant]
     Active Substance: LITHIUM
     Indication: BIPOLAR DISORDER
  11. QUETIAPINE. [Suspect]
     Active Substance: QUETIAPINE
     Indication: BIPOLAR DISORDER
     Dosage: 25 MG, QD
     Route: 065
  12. TRACYDAL [Suspect]
     Active Substance: TRANYLCYPROMINE SULFATE
     Indication: BIPOLAR II DISORDER
     Dosage: 50 MG, QD (2.5 TABLETS (50 MG) PER DAY IN THE MORNING)
     Route: 065
     Dates: start: 2017, end: 2017
  13. TRACYDAL [Suspect]
     Active Substance: TRANYLCYPROMINE SULFATE
     Dosage: 20 MG, BID (2 TABLETS (40 MG) PER DAY IN THE MORNING)
     Route: 065
     Dates: start: 2017, end: 2017
  14. TRACYDAL [Suspect]
     Active Substance: TRANYLCYPROMINE SULFATE
     Dosage: 10 MG, QD (0.5 MG TABLETS IN THE MORNING)
     Route: 065
     Dates: start: 201808, end: 201809
  15. TRACYDAL [Suspect]
     Active Substance: TRANYLCYPROMINE SULFATE
     Dosage: 50 MG, QD (2.5 TABLETS A DAY IN THE MORNING)
     Route: 065
     Dates: start: 201901
  16. TRACYDAL [Suspect]
     Active Substance: TRANYLCYPROMINE SULFATE
     Dosage: 20 MG, QD (1 TABLET PER DAY IN THE MORNING)
     Route: 065
     Dates: start: 201809, end: 201810
  17. PRIADEL [Concomitant]
     Active Substance: LITHIUM
     Indication: MOOD SWINGS
     Dosage: 1000 MG, QD
     Route: 065
  18. QUETIAPINE. [Interacting]
     Active Substance: QUETIAPINE
     Indication: SLEEP DISORDER
  19. TRACYDAL [Suspect]
     Active Substance: TRANYLCYPROMINE SULFATE
     Dosage: 10 MG, QD (MORNING, AFTER SOME DAYS DISCONTINUED)
     Route: 065
     Dates: start: 201707, end: 201707
  20. TRACYDAL [Suspect]
     Active Substance: TRANYLCYPROMINE SULFATE
     Dosage: 20 MG, BID (2 TABLETS A DAY IN THE MORNING)
     Route: 065
     Dates: start: 201811, end: 201901

REACTIONS (11)
  - Dizziness [Unknown]
  - Chest pain [Unknown]
  - Hypertensive crisis [Recovered/Resolved]
  - Hyperhidrosis [Not Recovered/Not Resolved]
  - Palpitations [Not Recovered/Not Resolved]
  - Contraindicated product administered [Not Recovered/Not Resolved]
  - Hypertension [Unknown]
  - Bradycardia [Recovered/Resolved]
  - Feeling hot [Not Recovered/Not Resolved]
  - Hypomania [Unknown]
  - Agitation [Unknown]

NARRATIVE: CASE EVENT DATE: 201707
